FAERS Safety Report 14474980 (Version 1)
Quarter: 2018Q1

REPORT INFORMATION
  Report Type: Spontaneous
  Country: IT (occurrence: IT)
  Receive Date: 20180201
  Receipt Date: 20180201
  Transmission Date: 20180509
  Serious: Yes (Other)
  Sender: FDA-Public Use
  Company Number: IT-PFIZER INC-2018037904

PATIENT
  Age: 41 Year
  Sex: Female

DRUGS (1)
  1. LOETTE [Suspect]
     Active Substance: ETHINYL ESTRADIOL\LEVONORGESTREL
     Indication: UTERINE LEIOMYOMA
     Dosage: 2.14 MG, CYCLIC
     Route: 048

REACTIONS (2)
  - Haemorrhage [Not Recovered/Not Resolved]
  - Product use in unapproved indication [Unknown]

NARRATIVE: CASE EVENT DATE: 20171211
